FAERS Safety Report 20363520 (Version 1)
Quarter: 2022Q1

REPORT INFORMATION
  Report Type: Spontaneous
  Country: SI (occurrence: SI)
  Receive Date: 20220121
  Receipt Date: 20220121
  Transmission Date: 20220424
  Serious: Yes (Hospitalization, Other)
  Sender: FDA-Public Use
  Company Number: SI-JNJFOC-20220125265

PATIENT
  Age: 40 Year
  Sex: Male

DRUGS (4)
  1. STELARA [Suspect]
     Active Substance: USTEKINUMAB
     Indication: Colitis ulcerative
     Route: 042
     Dates: start: 20210803
  2. STELARA [Suspect]
     Active Substance: USTEKINUMAB
     Route: 058
     Dates: start: 20210930
  3. DEXTRIFERRON [Concomitant]
     Active Substance: DEXTRIFERRON
     Indication: Osteoporosis
     Route: 042
  4. MESALAMINE [Concomitant]
     Active Substance: MESALAMINE

REACTIONS (5)
  - Deafness [Unknown]
  - Adrenal insufficiency [Unknown]
  - Tinnitus [Unknown]
  - Dizziness [Unknown]
  - Vomiting [Unknown]

NARRATIVE: CASE EVENT DATE: 20210901
